FAERS Safety Report 20047082 (Version 3)
Quarter: 2022Q1

REPORT INFORMATION
  Report Type: Report from Study
  Country: US (occurrence: US)
  Receive Date: 20211109
  Receipt Date: 20220120
  Transmission Date: 20220423
  Serious: No
  Sender: FDA-Public Use
  Company Number: US-NOVARTISTESTPH-NVSC2021US254843

PATIENT
  Sex: Female

DRUGS (1)
  1. ENTRESTO [Suspect]
     Active Substance: SACUBITRIL\VALSARTAN
     Indication: Product used for unknown indication
     Dosage: UNK, BID
     Route: 048
     Dates: start: 202108

REACTIONS (7)
  - Gait disturbance [Unknown]
  - Retching [Unknown]
  - Weight decreased [Unknown]
  - Vomiting [Unknown]
  - Food intolerance [Unknown]
  - Malaise [Unknown]
  - Nausea [Not Recovered/Not Resolved]
